FAERS Safety Report 24716827 (Version 1)
Quarter: 2024Q4

REPORT INFORMATION
  Report Type: Spontaneous
  Country: US (occurrence: None)
  Receive Date: 20241210
  Receipt Date: 20241210
  Transmission Date: 20250115
  Serious: Yes (Hospitalization)
  Sender: Public
  Company Number: None

PATIENT
  Age: 52 Year
  Sex: Female

DRUGS (4)
  1. BETASERON [Suspect]
     Active Substance: INTERFERON BETA-1B
     Indication: Multiple sclerosis
     Dosage: FREQUENCY : EVERY OTHER DAY;?
     Route: 058
     Dates: start: 20220928
  2. IRON [Concomitant]
     Active Substance: IRON
  3. METFORMIN [Concomitant]
     Active Substance: METFORMIN HYDROCHLORIDE
  4. NORCO [Concomitant]
     Active Substance: ACETAMINOPHEN\HYDROCODONE BITARTRATE

REACTIONS (3)
  - Sensory disturbance [None]
  - Musculoskeletal disorder [None]
  - Intentional dose omission [None]

NARRATIVE: CASE EVENT DATE: 20241107
